FAERS Safety Report 25447534 (Version 1)
Quarter: 2025Q2

REPORT INFORMATION
  Report Type: Spontaneous
  Country: US (occurrence: US)
  Receive Date: 20250617
  Receipt Date: 20250617
  Transmission Date: 20250716
  Serious: No
  Sender: ROCHE
  Company Number: US-ROCHE-10000308046

PATIENT
  Sex: Male

DRUGS (5)
  1. COTELLIC [Suspect]
     Active Substance: COBIMETINIB FUMARATE
     Indication: Product used for unknown indication
     Route: 048
     Dates: start: 202406
  2. ZELBORAF [Suspect]
     Active Substance: VEMURAFENIB
     Indication: Product used for unknown indication
     Route: 048
  3. ZELBORAF [Concomitant]
     Active Substance: VEMURAFENIB
  4. DAROLUTAMIDE [Concomitant]
     Active Substance: DAROLUTAMIDE
  5. COTELLIC [Concomitant]
     Active Substance: COBIMETINIB FUMARATE

REACTIONS (2)
  - Dizziness [Unknown]
  - Muscular weakness [Unknown]
